FAERS Safety Report 7019742-7 (Version None)
Quarter: 2010Q3

REPORT INFORMATION
  Report Type: 
  Country: None (occurrence: None)
  Receive Date: 20100929
  Receipt Date: 20100920
  Transmission Date: 20110219
  Serious: Yes (Hospitalization)
  Sender: FDA-Public Use
  Company Number: US-BIOGENIDEC-2010BI029544

PATIENT
  Age: 65 Year
  Sex: Female

DRUGS (3)
  1. AVONEX [Suspect]
     Indication: MULTIPLE SCLEROSIS
     Route: 030
     Dates: start: 19960801
  2. DILANTIN [Concomitant]
  3. KEPPRA [Concomitant]

REACTIONS (4)
  - ADVERSE DRUG REACTION [None]
  - CEREBRAL THROMBOSIS [None]
  - FALL [None]
  - HEAD INJURY [None]
